FAERS Safety Report 8783357 (Version 1)
Quarter: 2012Q4

REPORT INFORMATION
  Report Type: 
  Country: US (occurrence: US)
  Receive Date: 20120913
  Receipt Date: 20120913
  Transmission Date: 20130627
  Serious: No
  Sender: FDA-Public Use
  Company Number: US-PFIZER INC-2012225709

PATIENT
  Age: 64 Year
  Sex: Female
  Weight: 100 kg

DRUGS (3)
  1. PRISTIQ [Suspect]
     Indication: DEPRESSION
     Dosage: 50 mg, daily
     Dates: start: 201109
  2. ABILIFY [Concomitant]
     Indication: DRUG EFFECT INCREASED
     Dosage: 5 mg, daily
  3. METHYLPHENIDATE [Concomitant]
     Indication: ROUTINE HEALTH MAINTENANCE
     Dosage: UNK
     Route: 048

REACTIONS (1)
  - Somnolence [Not Recovered/Not Resolved]
